FAERS Safety Report 16015222 (Version 2)
Quarter: 2019Q1

REPORT INFORMATION
  Report Type: Report from Study
  Country: None (occurrence: IE)
  Receive Date: 20190228
  Receipt Date: 20190312
  Transmission Date: 20190418
  Serious: Yes (Life-Threatening, Hospitalization, Other)
  Sender: FDA-Public Use
  Company Number: IE-ABBVIE-19K-229-2677441-00

PATIENT
  Sex: Male

DRUGS (3)
  1. HUMIRA [Suspect]
     Active Substance: ADALIMUMAB
     Route: 058
     Dates: start: 20190228
  2. HUMIRA [Suspect]
     Active Substance: ADALIMUMAB
     Indication: CROHN^S DISEASE
     Dosage: LOADING DOSE  DAY 1
     Route: 058
     Dates: start: 20190124, end: 20190124
  3. HUMIRA [Suspect]
     Active Substance: ADALIMUMAB
     Dosage: LOADING DOSE  DAY 2
     Route: 058
     Dates: start: 20190208, end: 20190208

REACTIONS (11)
  - Aphasia [Recovered/Resolved]
  - Apparent death [Recovering/Resolving]
  - Medical device site injury [Recovering/Resolving]
  - Malaise [Recovering/Resolving]
  - Stress [Recovering/Resolving]
  - Syncope [Recovering/Resolving]
  - Sepsis [Recovered/Resolved]
  - Gastrointestinal disorder [Recovering/Resolving]
  - Haemorrhage [Recovering/Resolving]
  - Medical device site discharge [Recovering/Resolving]
  - Staphylococcal infection [Recovering/Resolving]

NARRATIVE: CASE EVENT DATE: 2019
